FAERS Safety Report 17558255 (Version 2)
Quarter: 2020Q2

REPORT INFORMATION
  Report Type: Spontaneous
  Country: ES (occurrence: ES)
  Receive Date: 20200319
  Receipt Date: 20200421
  Transmission Date: 20200713
  Serious: Yes (Other)
  Sender: FDA-Public Use
  Company Number: ES-BEH-2020114374

PATIENT
  Age: 35 Year
  Sex: Female

DRUGS (1)
  1. HUMAN IMMUNOGLOBULIN (NC) [Suspect]
     Active Substance: HUMAN IMMUNOGLOBULIN G
     Indication: AUTOIMMUNE HAEMOLYTIC ANAEMIA
     Route: 042

REACTIONS (3)
  - No adverse event [Unknown]
  - Stillbirth [Unknown]
  - Product use in unapproved indication [Unknown]
